FAERS Safety Report 5591368-1 (Version None)
Quarter: 2008Q1

REPORT INFORMATION
  Report Type: 
  Country: None (occurrence: None)
  Receive Date: 20080111
  Receipt Date: 20080111
  Transmission Date: 20080703
  Serious: Yes (Hospitalization)
  Sender: FDA-Public Use
  Company Number: None

PATIENT
  Sex: Female
  Weight: 77.1115 kg

DRUGS (1)
  1. NALTREXONE 50 MG REVIA [Suspect]
     Indication: ALCOHOL ABUSE
     Dosage: 50MG  WHENEVER NEEDED  PO
     Route: 048
     Dates: start: 20071001, end: 20071208

REACTIONS (7)
  - ABDOMINAL PAIN UPPER [None]
  - DIARRHOEA [None]
  - HEPATOCELLULAR INJURY [None]
  - MALAISE [None]
  - NO REACTION ON PREVIOUS EXPOSURE TO DRUG [None]
  - PHARMACEUTICAL PRODUCT COMPLAINT [None]
  - VOMITING [None]
